FAERS Safety Report 12890562 (Version 1)
Quarter: 2016Q4

REPORT INFORMATION
  Report Type: Spontaneous
  Country: US (occurrence: US)
  Receive Date: 20161027
  Receipt Date: 20161027
  Transmission Date: 20170207
  Serious: No
  Sender: FDA-Public Use
  Company Number: US-JAZZ-2016-US-015591

PATIENT
  Sex: Male

DRUGS (25)
  1. PROAIR HFA [Concomitant]
     Active Substance: ALBUTEROL SULFATE
  2. NUVIGIL [Concomitant]
     Active Substance: ARMODAFINIL
  3. MELOXICAM. [Concomitant]
     Active Substance: MELOXICAM
  4. CONCERTA [Concomitant]
     Active Substance: METHYLPHENIDATE HYDROCHLORIDE
  5. XYREM [Suspect]
     Active Substance: SODIUM OXYBATE
     Indication: NARCOLEPSY
     Dosage: 2.25 G, BID
     Route: 048
     Dates: start: 201009, end: 2010
  6. NICOTINE. [Concomitant]
     Active Substance: NICOTINE
  7. BACLOFEN. [Concomitant]
     Active Substance: BACLOFEN
  8. CLONAZEPAM. [Concomitant]
     Active Substance: CLONAZEPAM
  9. OXYCODONE AND ACETAMINOPHEN [Concomitant]
     Active Substance: ACETAMINOPHEN\OXYCODONE HYDROCHLORIDE
  10. WELLBUTRIN [Concomitant]
     Active Substance: BUPROPION HYDROCHLORIDE
  11. TUDORZA PRESSAIR [Concomitant]
     Active Substance: ACLIDINIUM BROMIDE
  12. XYREM [Suspect]
     Active Substance: SODIUM OXYBATE
     Dosage: 4.5 G, BID
     Route: 048
     Dates: start: 201101
  13. RISPERDAL [Concomitant]
     Active Substance: RISPERIDONE
  14. VICODIN [Concomitant]
     Active Substance: ACETAMINOPHEN\HYDROCODONE BITARTRATE
  15. XYREM [Suspect]
     Active Substance: SODIUM OXYBATE
     Dosage: DOSE ADJUSTMENTS
     Route: 048
     Dates: start: 201011, end: 201101
  16. BUPROPION HCL [Concomitant]
     Active Substance: BUPROPION HYDROCHLORIDE
  17. OXCARBAZEPINE. [Concomitant]
     Active Substance: OXCARBAZEPINE
  18. ORPHENADRINE [Concomitant]
     Active Substance: ORPHENADRINE
  19. ATORVASTATIN [Concomitant]
     Active Substance: ATORVASTATIN
  20. MECLIZINE HCL [Concomitant]
     Active Substance: MECLIZINE HYDROCHLORIDE
  21. SEROQUEL [Concomitant]
     Active Substance: QUETIAPINE FUMARATE
  22. TRILEPTAL [Concomitant]
     Active Substance: OXCARBAZEPINE
  23. NORCO [Concomitant]
     Active Substance: ACETAMINOPHEN\HYDROCODONE BITARTRATE
  24. PROVIGIL [Concomitant]
     Active Substance: MODAFINIL
  25. OMEPRAZOLE. [Concomitant]
     Active Substance: OMEPRAZOLE

REACTIONS (1)
  - Intentional product use issue [Unknown]
